FAERS Safety Report 6359334-6 (Version None)
Quarter: 2009Q3

REPORT INFORMATION
  Report Type: 
  Country: None (occurrence: None)
  Receive Date: 20090917
  Receipt Date: 20090910
  Transmission Date: 20100115
  Serious: Yes (Hospitalization, Other)
  Sender: FDA-Public Use
  Company Number: CA-ABBOTT-09P-028-0596988-00

PATIENT
  Sex: Male
  Weight: 74.91 kg

DRUGS (3)
  1. HUMIRA [Suspect]
     Indication: CROHN'S DISEASE
     Route: 058
     Dates: start: 20050101, end: 20090801
  2. HUMIRA [Suspect]
     Route: 058
  3. TYLENOL WITH CODEIN #3 [Concomitant]
     Indication: DRUG USE FOR UNKNOWN INDICATION
     Dosage: IN THE EVENINGS

REACTIONS (3)
  - BLOOD CREATININE INCREASED [None]
  - PAIN [None]
  - RENAL DISORDER [None]
